FAERS Safety Report 10149181 (Version 1)
Quarter: 2014Q2

REPORT INFORMATION
  Report Type: Spontaneous
  Country: GB (occurrence: None)
  Receive Date: 20140430
  Receipt Date: 20140430
  Transmission Date: 20141212
  Serious: Yes (Other)
  Sender: FDA-Public Use
  Company Number: AUR-APL-2014-05108

PATIENT
  Age: 87 Year
  Sex: Female
  Weight: 61.8 kg

DRUGS (9)
  1. AMOXICILLIN [Suspect]
     Indication: PRODUCT USED FOR UNKNOWN INDICATION
     Dates: start: 20140402
  2. ASPIRIN (ACETYLSALICYLIC ACID) [Concomitant]
  3. CARBOCISTEINE (CARBOCISTEINE) [Concomitant]
  4. FUROSEMIDE (FUROSEMIDE) [Concomitant]
  5. OMEPRAZOLE (OMEPRAZOLE) [Concomitant]
  6. PARACETAMOL (PARACETAMOL) [Concomitant]
  7. SALBUTAMOL (SALBUTAMOL) [Concomitant]
  8. SERETIDE (SERETIDE) [Concomitant]
  9. TIOTROPIUM (TIOTROPIUM) [Concomitant]

REACTIONS (1)
  - Skin exfoliation [None]
